FAERS Safety Report 9550552 (Version 1)
Quarter: 2013Q3

REPORT INFORMATION
  Report Type: Spontaneous
  Country: US (occurrence: US)
  Receive Date: 20130924
  Receipt Date: 20130924
  Transmission Date: 20140515
  Serious: No
  Sender: FDA-Public Use
  Company Number: US-SANOFI-AVENTIS-2013SA032736

PATIENT
  Age: 69 Year
  Sex: Male

DRUGS (1)
  1. AUBAGIO [Suspect]
     Indication: MULTIPLE SCLEROSIS
     Route: 048

REACTIONS (6)
  - Somnolence [Unknown]
  - Wheezing [Not Recovered/Not Resolved]
  - Cough [Not Recovered/Not Resolved]
  - Fear [Not Recovered/Not Resolved]
  - Drug withdrawal syndrome [Unknown]
  - Drug dose omission [Unknown]
